FAERS Safety Report 7580705-4 (Version None)
Quarter: 2011Q2

REPORT INFORMATION
  Report Type: 
  Country: None (occurrence: None)
  Receive Date: 20110629
  Receipt Date: 20110616
  Transmission Date: 20111010
  Serious: Yes (Hospitalization)
  Sender: FDA-Public Use
  Company Number: JP-ELI_LILLY_AND_COMPANY-JP201106000433

PATIENT
  Sex: Male
  Weight: 50 kg

DRUGS (5)
  1. BYETTA [Suspect]
     Indication: TYPE 2 DIABETES MELLITUS
     Dosage: 5 UG, BID
     Route: 058
     Dates: start: 20110525, end: 20110526
  2. PERSANTIN [Concomitant]
     Indication: DIABETIC NEPHROPATHY
     Dosage: 150 MG, QD
     Route: 048
     Dates: start: 20090225
  3. SODIUM POLYSTYRENE SULFONATE [Concomitant]
     Indication: HYPERKALAEMIA
     Dosage: UNK
     Route: 048
     Dates: start: 20110525
  4. HUMALOG [Concomitant]
     Indication: TYPE 2 DIABETES MELLITUS
     Dosage: UNK, OTHER, 13-0-9-0
     Route: 058
     Dates: start: 20110126, end: 20110525
  5. AMARYL [Concomitant]
     Indication: TYPE 2 DIABETES MELLITUS
     Dosage: 2 MG, QD
     Route: 048
     Dates: start: 20110525, end: 20110526

REACTIONS (4)
  - HYPERGLYCAEMIA [None]
  - VOMITING [None]
  - NAUSEA [None]
  - DECREASED APPETITE [None]
